FAERS Safety Report 16958976 (Version 1)
Quarter: 2019Q4

REPORT INFORMATION
  Report Type: Spontaneous
  Country: BR (occurrence: BR)
  Receive Date: 20191024
  Receipt Date: 20191024
  Transmission Date: 20200122
  Serious: Yes (Other)
  Sender: FDA-Public Use
  Company Number: BR-ALLERGAN-1941955US

PATIENT
  Sex: Female
  Weight: 35 kg

DRUGS (11)
  1. CLEXANE [Concomitant]
     Active Substance: ENOXAPARIN SODIUM
     Indication: DEEP VEIN THROMBOSIS
  2. NEXIUM [Concomitant]
     Active Substance: ESOMEPRAZOLE MAGNESIUM
     Indication: STRESS ULCER
  3. LAMITOR [Concomitant]
     Active Substance: LAMOTRIGINE
     Indication: EPILEPSY
  4. MOTILIUM [Concomitant]
     Active Substance: DOMPERIDONE
     Indication: IMPAIRED GASTRIC EMPTYING
  5. CEFTAZIDIME;AVIBACTAM - BP [Suspect]
     Active Substance: AVIBACTAM SODIUM\CEFTAZIDIME
     Indication: KLEBSIELLA INFECTION
     Dosage: 2.5 G, Q8HR
     Route: 042
     Dates: start: 20190922, end: 20190930
  6. HIDANTAL [Concomitant]
     Active Substance: PHENYTOIN SODIUM
     Indication: EPILEPSY
  7. NEOZINE [Concomitant]
     Active Substance: LEVOMEPROMAZINE
     Indication: AGITATION
  8. NUJOL [Concomitant]
     Indication: CONSTIPATION
  9. GARDENAL [Concomitant]
     Active Substance: PHENOBARBITAL
     Indication: EPILEPSY
  10. ATROPINE. [Concomitant]
     Active Substance: ATROPINE
     Indication: SALIVARY HYPERSECRETION
  11. MESTINON [Concomitant]
     Active Substance: PYRIDOSTIGMINE BROMIDE
     Indication: CONSTIPATION

REACTIONS (4)
  - Depressed level of consciousness [Unknown]
  - Seizure [Recovered/Resolved]
  - Myoclonus [Recovered/Resolved]
  - Bronchial aspiration procedure [Unknown]
